FAERS Safety Report 5141296-0 (Version None)
Quarter: 2006Q4

REPORT INFORMATION
  Report Type: 
  Country: None (occurrence: None)
  Receive Date: 20061101
  Receipt Date: 20061018
  Transmission Date: 20070319
  Serious: Yes (Hospitalization)
  Sender: FDA-Public Use
  Company Number: 2006PK02159

PATIENT
  Sex: Female

DRUGS (3)
  1. TAMOXIFEN CITRATE [Suspect]
     Indication: BREAST CANCER
     Dates: start: 20060401
  2. VALPROIC ACID [Interacting]
     Indication: EPILEPSY
  3. ZOLADEX [Concomitant]
     Indication: BREAST CANCER
     Route: 058
     Dates: start: 20060401

REACTIONS (3)
  - ANTICONVULSANT DRUG LEVEL DECREASED [None]
  - CONVULSION [None]
  - DRUG INTERACTION [None]
